FAERS Safety Report 5124153-5 (Version None)
Quarter: 2006Q4

REPORT INFORMATION
  Report Type: 
  Country: None (occurrence: None)
  Receive Date: 20061010
  Receipt Date: 20051117
  Transmission Date: 20070319
  Serious: No
  Sender: FDA-Public Use
  Company Number: US-BRISTOL-MYERS SQUIBB COMPANY-13375688

PATIENT
  Age: 73 Year
  Sex: Female
  Weight: 104 kg

DRUGS (9)
  1. AVAPRO [Suspect]
     Indication: HYPERTENSION
     Dosage: STARTED APPROX. 1 TO 2 YEARS AGO
  2. FISH OIL [Concomitant]
  3. POTASSIUM [Concomitant]
  4. CALCIUM GLUCONATE [Concomitant]
  5. BISOPROLOL FUMARATE + HCTZ [Concomitant]
  6. IRON [Concomitant]
  7. VITAMIN TAB [Concomitant]
  8. MINERAL TAB [Concomitant]
  9. ASPIRIN [Concomitant]

REACTIONS (1)
  - DYSGEUSIA [None]
